FAERS Safety Report 10173961 (Version 1)
Quarter: 2014Q2

REPORT INFORMATION
  Report Type: Spontaneous
  Country: GB (occurrence: GB)
  Receive Date: 20140515
  Receipt Date: 20140515
  Transmission Date: 20141212
  Serious: Yes (Congenital Anomaly)
  Sender: FDA-Public Use
  Company Number: GB-009507513-1405GBR003585

PATIENT
  Sex: 0

DRUGS (3)
  1. ETONOGESTREL [Suspect]
     Indication: CONTRACEPTION
     Dosage: 200 MG, UNK
     Route: 064
     Dates: start: 20130626, end: 20140129
  2. TRIMETHOPRIM [Concomitant]
     Indication: CONTRACEPTION
     Dosage: 200 MG, BID
     Route: 064
     Dates: start: 20130811
  3. DESOGESTREL [Concomitant]
     Dosage: UNK
     Route: 064
     Dates: end: 201306

REACTIONS (1)
  - Cleft lip [Unknown]
